FAERS Safety Report 19151749 (Version 3)
Quarter: 2021Q2

REPORT INFORMATION
  Report Type: Other
  Country: GB (occurrence: GB)
  Receive Date: 20210419
  Receipt Date: 20210531
  Transmission Date: 20210717
  Serious: Yes (Hospitalization, Other)
  Sender: FDA-Public Use
  Company Number: GB-IPCA LABORATORIES LIMITED-IPC-2021-GB-000882

PATIENT

DRUGS (17)
  1. CARBOPLATIN. [Suspect]
     Active Substance: CARBOPLATIN
     Indication: ENDOMETRIAL CANCER
     Dosage: 500 MILLIGRAM (CYCLE 1 OF 3?WEEKLY REGIMEN)
     Route: 065
     Dates: start: 20210301
  2. PREGABALIN. [Concomitant]
     Active Substance: PREGABALIN
     Indication: NEURALGIA
     Dosage: 50 MILLIGRAM, QD
     Route: 048
  3. GLUCOSE [Suspect]
     Active Substance: DEXTROSE
     Indication: MEDICATION DILUTION
     Dosage: 500 MILLILITER
     Route: 065
     Dates: start: 20210301
  4. FOLIC ACID. [Concomitant]
     Active Substance: FOLIC ACID
     Indication: FOLATE DEFICIENCY
     Dosage: 5 MILLIGRAM, QD
     Route: 048
  5. CARBOPLATIN. [Suspect]
     Active Substance: CARBOPLATIN
     Dosage: 500 MILLIGRAM (CYCLE 1 OF 3?WEEKLY REGIMEN)
     Route: 065
     Dates: start: 20210301
  6. ZOMORPH [Suspect]
     Active Substance: MORPHINE SULFATE
     Indication: PAIN
     Dosage: 40 MILLIGRAM (MODIFIED RELEASE CAPSULES)
     Route: 048
  7. DEXAMETHASONE. [Suspect]
     Active Substance: DEXAMETHASONE
     Indication: PROPHYLAXIS OF NAUSEA AND VOMITING
     Dosage: 4 MILLIGRAM, QD
     Route: 048
     Dates: start: 20210302, end: 20210303
  8. MORPHINE SULFATE. [Suspect]
     Active Substance: MORPHINE SULFATE
     Indication: PAIN
     Dosage: 5 MILLIGRAM, PRN (10MG/5 ML)
     Route: 048
  9. PACLITAXEL. [Suspect]
     Active Substance: PACLITAXEL
     Indication: ENDOMETRIAL CANCER
     Dosage: 336 MILLIGRAM (CYCLE 1 OF 3?WEEKLY REGIMEN)
     Route: 065
     Dates: start: 20210301
  10. METOCLOPRAMIDE. [Suspect]
     Active Substance: METOCLOPRAMIDE
     Indication: PROPHYLAXIS OF NAUSEA AND VOMITING
     Dosage: 10 MILLIGRAM, PRN (UPTO 3 TIMES A DAY, AS REQUIRED)
     Route: 048
     Dates: start: 20210301
  11. SODIUM CHLORIDE. [Suspect]
     Active Substance: SODIUM CHLORIDE
     Indication: MEDICATION DILUTION
     Dosage: 306 MILLILITER
     Route: 065
     Dates: start: 20210301
  12. APIXABAN [Concomitant]
     Active Substance: APIXABAN
     Indication: ANTICOAGULANT THERAPY
     Dosage: 5 MILLIGRAM, QD
     Route: 048
  13. GLUCOSE [Suspect]
     Active Substance: DEXTROSE
     Dosage: 550 MILLILITER
     Route: 065
     Dates: start: 20210301
  14. DIAZEPAM. [Concomitant]
     Active Substance: DIAZEPAM
     Indication: ANXIETY
     Dosage: 2 MILLIGRAM, PRN (UPTO THREE TIMES A DAY, AS REQUIRED.)
     Route: 048
  15. PARACETAMOL [Suspect]
     Active Substance: ACETAMINOPHEN
     Indication: PAIN
     Dosage: 1 GRAM, PRN (UPTO FOUR TIMES, AS REQUIRED)
     Route: 048
  16. ONDANSETRON [Suspect]
     Active Substance: ONDANSETRON
     Indication: PROPHYLAXIS OF NAUSEA AND VOMITING
     Dosage: 8 MILLIGRAM, QD
     Route: 048
     Dates: start: 20210302, end: 20210303
  17. CYANOCOBALAMIN. [Concomitant]
     Active Substance: CYANOCOBALAMIN
     Indication: VITAMIN B12 DEFICIENCY
     Dosage: 1 DOSAGE FORM
     Route: 048

REACTIONS (3)
  - Acute kidney injury [Recovering/Resolving]
  - Myelosuppression [Recovering/Resolving]
  - Neutropenic sepsis [Unknown]

NARRATIVE: CASE EVENT DATE: 202103
